FAERS Safety Report 25940656 (Version 1)
Quarter: 2025Q4

REPORT INFORMATION
  Report Type: Spontaneous
  Country: US (occurrence: None)
  Receive Date: 20251017
  Receipt Date: 20251017
  Transmission Date: 20260117
  Serious: Yes (Other)
  Sender: FDA-CTU
  Company Number: None

PATIENT
  Age: 62 Year
  Sex: Female
  Weight: 45 kg

DRUGS (4)
  1. DOXORUBICIN HYDROCHLORIDE [Suspect]
     Active Substance: DOXORUBICIN HYDROCHLORIDE
  2. VITAMIN C [Concomitant]
     Active Substance: ASCORBIC ACID
  3. CHOLECALCIFEROL [Concomitant]
     Active Substance: CHOLECALCIFEROL
  4. NM-6603 [Concomitant]
     Active Substance: NM-6603

REACTIONS (5)
  - Bone pain [None]
  - Lymphadenopathy [None]
  - Abdominal distension [None]
  - Retroperitoneal lymphadenopathy [None]
  - Necrotic lymphadenopathy [None]

NARRATIVE: CASE EVENT DATE: 20250909
